FAERS Safety Report 17924583 (Version 1)
Quarter: 2020Q2

REPORT INFORMATION
  Report Type: Other
  Country: US (occurrence: US)
  Receive Date: 20200622
  Receipt Date: 20200622
  Transmission Date: 20200714
  Serious: No
  Sender: FDA-Public Use
  Company Number: US-ACORDA-ACO_164527_2020

PATIENT
  Sex: Male

DRUGS (4)
  1. APOKYN [Concomitant]
     Active Substance: APOMORPHINE HYDROCHLORIDE
     Indication: PRODUCT USED FOR UNKNOWN INDICATION
     Dosage: UNK
     Route: 065
  2. INBRIJA [Suspect]
     Active Substance: LEVODOPA
     Indication: PARKINSON^S DISEASE
     Dosage: 2 CAPSULES (84 MG), PRN NOT TO EXCEED 5 DOSES/DAY
     Dates: start: 202003
  3. CARBIDOPA/LEVODOPA [Concomitant]
     Active Substance: CARBIDOPA\LEVODOPA
     Indication: PRODUCT USED FOR UNKNOWN INDICATION
     Dosage: UNK
     Route: 065
  4. INBRIJA [Suspect]
     Active Substance: LEVODOPA
     Indication: ON AND OFF PHENOMENON
     Dosage: 2 CAPSULES (84 MG), BID (2 DOSES)

REACTIONS (11)
  - Device use issue [Unknown]
  - Speech disorder [Unknown]
  - Device defective [Unknown]
  - Device difficult to use [Unknown]
  - On and off phenomenon [Unknown]
  - Inappropriate schedule of product administration [Unknown]
  - Parkinson^s disease [Unknown]
  - Incorrect route of product administration [Unknown]
  - Gait disturbance [Unknown]
  - Tremor [Unknown]
  - Product residue present [Unknown]
